FAERS Safety Report 9986763 (Version 2)
Quarter: 2014Q1

REPORT INFORMATION
  Report Type: Spontaneous
  Country: US (occurrence: US)
  Receive Date: 20140307
  Receipt Date: 20140328
  Transmission Date: 20141002
  Serious: Yes (Hospitalization, Other)
  Sender: FDA-Public Use
  Company Number: US-B.I. PHARMACEUTICALS,INC./RIDGEFIELD-2014-BI-09467BP

PATIENT
  Age: 83 Year
  Sex: Male
  Weight: 93 kg

DRUGS (25)
  1. PRADAXA [Suspect]
     Indication: ATRIAL FIBRILLATION
     Dosage: 300 MG
     Route: 048
  2. PRADAXA [Suspect]
     Indication: CEREBROVASCULAR ACCIDENT PROPHYLAXIS
  3. TROSPIUM (SANCTURA) [Concomitant]
     Route: 048
  4. FENTANYL (DURAGESIC) [Concomitant]
     Dosage: FORMULATION: PATCH, DOSE PER APPLICATION: 25 MCG/ HR TD 72HR PATCH
     Route: 062
  5. FENTANYL (DURAGESIC) [Concomitant]
     Dosage: FORMULATION: PATCH, DOSE PER APPLICATION: 12 MCG/ HR TD 72HR PATCH
     Route: 062
  6. METHYCELLULOSE (CITRUCEL) [Concomitant]
     Route: 048
  7. BACLOFEN (LIORESAL) [Concomitant]
     Route: 048
  8. LACTULOSE [Concomitant]
     Dosage: DOSE PER APPLICATION:10GRAM/ 15ML
     Route: 048
  9. CARBIDOPA-LEVODOPA (SINEMET) [Concomitant]
     Dosage: DOSE PER APPLICAITON: 25 - 100 MG
     Route: 048
  10. TERAZOSIN (HYTRIN) [Concomitant]
     Route: 048
  11. HYDROCODONE-ACETAMINOPHEN (NORCO) [Concomitant]
     Dosage: DOSE PER APPLICATION: 5-325 MILLIGRAM
     Route: 048
  12. FAMOTIDINE (PEPCID) [Concomitant]
     Route: 048
  13. GLIPIZIDE (GLUCOTROL) [Concomitant]
     Route: 048
  14. LISINOPRIL (PRINIVIL / ZESTRIL) [Concomitant]
     Route: 048
  15. BLOOD SUGAR TEST (ONE TOUCH ULTRA TEST) [Concomitant]
     Dosage: FORMULATION: STRIPS
     Route: 065
  16. LANCETS (ONE TOUCH DELICA LANCETS) [Concomitant]
     Route: 065
  17. BLOOD GLUCOSE CONTROL, NORMAL (ONE TOUCH ULTRA CONTROL) [Concomitant]
     Route: 065
  18. PRAVASTATIN (PRAVACHOL) [Concomitant]
     Route: 048
  19. ATENOLOL (TENORMIN) [Concomitant]
     Route: 048
  20. MULTIVITAMIN [Concomitant]
     Route: 048
  21. OS-CAL 500 + D [Concomitant]
     Dosage: DOSE: 500 MG ( 1,250 MG) - 200 UNIT
     Route: 048
  22. VITAMINS [Concomitant]
     Route: 065
  23. VITAMIN D [Concomitant]
     Route: 065
  24. ATORVASTATIN [Concomitant]
     Route: 065
  25. CALCIUM [Concomitant]
     Route: 065

REACTIONS (1)
  - Volvulus [Recovered/Resolved]
